FAERS Safety Report 9760244 (Version 1)
Quarter: 2013Q4

REPORT INFORMATION
  Report Type: Spontaneous
  Country: US (occurrence: US)
  Receive Date: 20131216
  Receipt Date: 20131216
  Transmission Date: 20140711
  Serious: No
  Sender: FDA-Public Use
  Company Number: US-GILEAD-2010-0028748

PATIENT
  Sex: Female
  Weight: 58.97 kg

DRUGS (12)
  1. LETAIRIS [Suspect]
     Indication: PULMONARY ARTERIAL HYPERTENSION
     Route: 048
     Dates: start: 20100312
  2. LODINE [Concomitant]
  3. PREMARIN [Concomitant]
  4. NORVASC [Concomitant]
  5. REVATIO [Concomitant]
  6. CLARITIN [Concomitant]
  7. SYMBICORT [Concomitant]
  8. PRILOSEC [Concomitant]
  9. OXYCODONE-APAP [Concomitant]
  10. MULTIVITAMIN [Concomitant]
  11. SKELAXIN [Concomitant]
  12. ASPIRIN [Concomitant]

REACTIONS (3)
  - Vomiting [Unknown]
  - Hypersensitivity [Unknown]
  - Urticaria [Unknown]
